FAERS Safety Report 4589427-5 (Version None)
Quarter: 2005Q1

REPORT INFORMATION
  Report Type: 
  Country: None (occurrence: None)
  Receive Date: 20050223
  Receipt Date: 20040327
  Transmission Date: 20050727
  Serious: Yes (Other)
  Sender: FDA-Public Use
  Company Number: 200411062JP

PATIENT
  Sex: Female

DRUGS (2)
  1. LANTUS [Suspect]
     Route: 058
     Dates: start: 20040301
  2. OPTIPEN (INSULIN PUMP) [Suspect]

REACTIONS (2)
  - FEELING ABNORMAL [None]
  - MUSCLE RIGIDITY [None]
